FAERS Safety Report 9758352 (Version 1)
Quarter: 2013Q4

REPORT INFORMATION
  Report Type: Spontaneous
  Country: US (occurrence: US)
  Receive Date: 20131216
  Receipt Date: 20131216
  Transmission Date: 20140711
  Serious: Yes (Other)
  Sender: FDA-Public Use
  Company Number: US-SHIRE-ALL1-2013-08560

PATIENT
  Age: 2 Year
  Sex: Female

DRUGS (1)
  1. VYVANSE [Suspect]
     Indication: ACCIDENTAL EXPOSURE TO PRODUCT BY CHILD
     Dosage: 300 MG, UNKNOWN
     Route: 048

REACTIONS (3)
  - Accidental exposure to product by child [Unknown]
  - Adverse event [Unknown]
  - Accidental overdose [Unknown]
